FAERS Safety Report 19775461 (Version 27)
Quarter: 2021Q4

REPORT INFORMATION
  Report Type: Report from Study
  Country: AU (occurrence: AU)
  Receive Date: 20210901
  Receipt Date: 20211220
  Transmission Date: 20220303
  Serious: Yes (Hospitalization, Other)
  Sender: FDA-Public Use
  Company Number: AU-BIOGEN-2021BI01040661

PATIENT
  Age: 52 Year
  Sex: Female

DRUGS (7)
  1. TECFIDERA [Suspect]
     Active Substance: DIMETHYL FUMARATE
     Indication: Multiple sclerosis
     Dosage: MAINTENANCE DOSE
     Route: 048
     Dates: start: 20201014
  2. BACLOFEN [Suspect]
     Active Substance: BACLOFEN
     Indication: Muscle spasms
     Route: 065
  3. BACLOFEN [Suspect]
     Active Substance: BACLOFEN
     Route: 065
     Dates: end: 20210823
  4. OXYCODONE HYDROCHLORIDE [Suspect]
     Active Substance: OXYCODONE HYDROCHLORIDE
     Indication: Pain
     Route: 065
  5. NALOXONE HYDROCHLORIDE\OXYCODONE HYDROCHLORIDE [Suspect]
     Active Substance: NALOXONE HYDROCHLORIDE\OXYCODONE HYDROCHLORIDE
     Indication: Pain
     Dosage: 5MG/2.5 X1 NOCTE
     Route: 048
     Dates: start: 202111
  6. NALOXONE HYDROCHLORIDE\OXYCODONE HYDROCHLORIDE [Suspect]
     Active Substance: NALOXONE HYDROCHLORIDE\OXYCODONE HYDROCHLORIDE
     Route: 065
     Dates: start: 20211118
  7. NORTRIPTYLINE [Concomitant]
     Active Substance: NORTRIPTYLINE
     Indication: Product used for unknown indication
     Dosage: DOSE INCREASED (INCREASE STARTED 27-AUG-2021)
     Route: 065

REACTIONS (44)
  - Dissociative disorder [Not Recovered/Not Resolved]
  - Depressed mood [Not Recovered/Not Resolved]
  - Syringomyelia [Recovered/Resolved]
  - Noninfectious myelitis [Recovered/Resolved]
  - Mental disorder [Not Recovered/Not Resolved]
  - Malaise [Not Recovered/Not Resolved]
  - Respiratory tract infection [Not Recovered/Not Resolved]
  - Fall [Recovered/Resolved]
  - Pain in extremity [Not Recovered/Not Resolved]
  - Motor dysfunction [Unknown]
  - Arthralgia [Not Recovered/Not Resolved]
  - Facial pain [Not Recovered/Not Resolved]
  - Eye pain [Not Recovered/Not Resolved]
  - Trigeminal neuralgia [Not Recovered/Not Resolved]
  - Anxiety [Not Recovered/Not Resolved]
  - Emotional distress [Unknown]
  - Crying [Recovered/Resolved]
  - Somnolence [Not Recovered/Not Resolved]
  - Balance disorder [Not Recovered/Not Resolved]
  - Insomnia [Not Recovered/Not Resolved]
  - Fatigue [Not Recovered/Not Resolved]
  - Hypersomnia [Unknown]
  - Neuralgia [Not Recovered/Not Resolved]
  - Stress [Not Recovered/Not Resolved]
  - Muscle spasms [Not Recovered/Not Resolved]
  - Dizziness [Recovered/Resolved]
  - Palpitations [Not Recovered/Not Resolved]
  - Lichen sclerosus [Unknown]
  - Pain [Not Recovered/Not Resolved]
  - Poor quality sleep [Not Recovered/Not Resolved]
  - Ageusia [Not Recovered/Not Resolved]
  - Vulval eczema [Not Recovered/Not Resolved]
  - Central nervous system lesion [Unknown]
  - Inguinal hernia [Unknown]
  - Ovarian disorder [Unknown]
  - Feeling of despair [Not Recovered/Not Resolved]
  - Spondylitis [Not Recovered/Not Resolved]
  - Tremor [Not Recovered/Not Resolved]
  - Hallucination [Recovered/Resolved]
  - Multiple sclerosis [Not Recovered/Not Resolved]
  - Flushing [Recovered/Resolved]
  - Nausea [Not Recovered/Not Resolved]
  - Vomiting [Unknown]
  - Diarrhoea [Not Recovered/Not Resolved]

NARRATIVE: CASE EVENT DATE: 20210701
